FAERS Safety Report 4795354-0 (Version None)
Quarter: 2005Q4

REPORT INFORMATION
  Report Type: 
  Country: None (occurrence: None)
  Receive Date: 20051006
  Receipt Date: 20050929
  Transmission Date: 20060501
  Serious: Yes (Other)
  Sender: FDA-Public Use
  Company Number: HQWYE808703OCT05

PATIENT
  Age: 19 Year
  Sex: Female

DRUGS (1)
  1. ADVIL [Suspect]
     Dosage: ONE TABLET ORAL
     Route: 048

REACTIONS (1)
  - CELLULITIS [None]
